FAERS Safety Report 7234556-0 (Version None)
Quarter: 2011Q1

REPORT INFORMATION
  Report Type: 
  Country: None (occurrence: None)
  Receive Date: 20110119
  Receipt Date: 20110114
  Transmission Date: 20110831
  Serious: Yes (Death)
  Sender: FDA-Public Use
  Company Number: US-BRISTOL-MYERS SQUIBB COMPANY-15488372

PATIENT
  Age: 6 Decade
  Sex: Male

DRUGS (2)
  1. CISPLATIN [Suspect]
  2. ERBITUX [Suspect]

REACTIONS (2)
  - RASH [None]
  - PULMONARY EMBOLISM [None]
